FAERS Safety Report 9889794 (Version 1)
Quarter: 2014Q1

REPORT INFORMATION
  Report Type: Spontaneous
  Country: FR (occurrence: FR)
  Receive Date: 20140212
  Receipt Date: 20140212
  Transmission Date: 20141002
  Serious: Yes (Life-Threatening, Hospitalization)
  Sender: FDA-Public Use
  Company Number: FR-ROCHE-1344225

PATIENT
  Age: 57 Year
  Sex: Male

DRUGS (2)
  1. ROCEPHINE [Suspect]
     Indication: TONSILLITIS
     Route: 065
     Dates: start: 20120111, end: 20120116
  2. CELESTENE (FRANCE) [Suspect]
     Indication: TONSILLITIS
     Route: 048
     Dates: start: 20120111, end: 20120116

REACTIONS (2)
  - Septic shock [Recovered/Resolved]
  - Cellulitis [Recovered/Resolved with Sequelae]
